FAERS Safety Report 7056133-7 (Version None)
Quarter: 2010Q4

REPORT INFORMATION
  Report Type: 
  Country: None (occurrence: None)
  Receive Date: 20101021
  Receipt Date: 20101019
  Transmission Date: 20110411
  Serious: Yes (Death)
  Sender: FDA-Public Use
  Company Number: US-JNJFOC-20080102268

PATIENT
  Age: 39 Year
  Sex: Female

DRUGS (4)
  1. DEXTROMETHORPHAN [Suspect]
     Indication: SUICIDE ATTEMPT
     Route: 048
  2. ANTIHISTAMINE/DECONGESTANT [Suspect]
     Indication: SUICIDE ATTEMPT
     Route: 048
  3. MEPROBAMATE [Suspect]
     Indication: SUICIDE ATTEMPT
     Route: 048
  4. BUPROPION [Suspect]
     Indication: SUICIDE ATTEMPT
     Route: 048

REACTIONS (1)
  - DRUG TOXICITY [None]
